FAERS Safety Report 8934760 (Version 2)
Quarter: 2013Q1

REPORT INFORMATION
  Report Type: Spontaneous
  Country: US (occurrence: US)
  Receive Date: 20121129
  Receipt Date: 20130118
  Transmission Date: 20140127
  Serious: No
  Sender: FDA-Public Use
  Company Number: US-PFIZER INC-2012299789

PATIENT
  Age: 37 Year
  Sex: Female
  Weight: 77 kg

DRUGS (1)
  1. ADVIL [Suspect]
     Indication: BACK PAIN
     Dosage: 600 MG, TWO TIMES A DAY
     Route: 048
     Dates: start: 2009

REACTIONS (3)
  - Poor quality drug administered [Unknown]
  - Throat irritation [Recovered/Resolved]
  - Product physical issue [Unknown]
